FAERS Safety Report 5155679-6 (Version None)
Quarter: 2006Q4

REPORT INFORMATION
  Report Type: 
  Country: None (occurrence: None)
  Receive Date: 20061114
  Receipt Date: 20061103
  Transmission Date: 20070319
  Serious: Yes (Death)
  Sender: FDA-Public Use
  Company Number: GXKR2006US07077

PATIENT
  Age: 7 Day
  Sex: Male

DRUGS (1)
  1. VERAPAMIL [Suspect]
     Dosage: 25 MG, ONCE/SINGLE, ORAL
     Route: 048

REACTIONS (3)
  - CARDIO-RESPIRATORY ARREST NEONATAL [None]
  - DEATH NEONATAL [None]
  - INCORRECT DOSE ADMINISTERED [None]
